FAERS Safety Report 7587056 (Version 3)
Quarter: 2020Q2

REPORT INFORMATION
  Report Type: Spontaneous
  Country: US (occurrence: US)
  Receive Date: 20100915
  Receipt Date: 20200610
  Transmission Date: 20200714
  Serious: Yes (Death)
  Sender: FDA-Public Use
  Company Number: US-PFIZER INC-2010115167

PATIENT

DRUGS (4)
  1. CEFAZOLIN [Concomitant]
     Active Substance: CEFAZOLIN
     Dosage: UNK
     Route: 064
  2. ERYTHROMYCIN. [Suspect]
     Active Substance: ERYTHROMYCIN
     Dosage: UNK
     Route: 064
  3. AMPICILLIN SODIUM/SULBACTAM SODIUM [Suspect]
     Active Substance: AMPICILLIN SODIUM\SULBACTAM SODIUM
     Indication: BACTERIAL DISEASE CARRIER
     Dosage: UNK
     Route: 064
  4. AMOXICILLIN TRIHYDRATE [Suspect]
     Active Substance: AMOXICILLIN
     Dosage: UNK
     Route: 064

REACTIONS (4)
  - Pneumonia klebsiella [Fatal]
  - Foetal exposure during pregnancy [Fatal]
  - Beta haemolytic streptococcal infection [Fatal]
  - Bacteraemia [Fatal]
